FAERS Safety Report 9038018 (Version 1)
Quarter: 2013Q1

REPORT INFORMATION
  Report Type: Report from Study
  Country: US (occurrence: US)
  Receive Date: 20130129
  Receipt Date: 20130129
  Transmission Date: 20140127
  Serious: No
  Sender: FDA-Public Use
  Company Number: US-ABBOTT-12P-163-0923429-00

PATIENT
  Sex: Female

DRUGS (4)
  1. HUMIRA 40 MG/ 0.8 ML PRE-FILLED SYRINGE [Suspect]
     Indication: PSORIATIC ARTHROPATHY
     Dates: start: 20051006
  2. FOLIC ACID [Concomitant]
     Indication: VITAMIN SUPPLEMENTATION
  3. TRAMADOL [Concomitant]
     Indication: PAIN
  4. SEASONALE [Concomitant]
     Indication: CONTRACEPTION

REACTIONS (1)
  - Fatigue [Recovered/Resolved]
